FAERS Safety Report 8014965-2 (Version None)
Quarter: 2011Q4

REPORT INFORMATION
  Report Type: 
  Country: None (occurrence: None)
  Receive Date: 20111229
  Receipt Date: 20111014
  Transmission Date: 20120403
  Serious: Yes (Other)
  Sender: FDA-Public Use
  Company Number: PHHY2011NL100462

PATIENT
  Sex: Male

DRUGS (4)
  1. ZOMETA [Suspect]
     Indication: EWING'S SARCOMA
     Dosage: 4MG/5ML ONCE PER 28 DAYS
     Route: 042
     Dates: start: 20100921
  2. ZOMETA [Suspect]
     Dosage: 4MG/5ML ONCE PER 28 DAYS
     Route: 042
     Dates: start: 20111115
  3. ZOMETA [Suspect]
     Dosage: 4MG/5ML ONCE PER 28 DAYS
     Route: 042
     Dates: start: 20111014
  4. CHEMOTHERAPEUTICS [Concomitant]
     Dosage: UNK

REACTIONS (6)
  - NEOPLASM MALIGNANT [None]
  - OEDEMA PERIPHERAL [None]
  - NEOPLASM PROGRESSION [None]
  - MALAISE [None]
  - CARDIAC FAILURE [None]
  - DYSPNOEA [None]
